FAERS Safety Report 21688792 (Version 1)
Quarter: 2022Q4

REPORT INFORMATION
  Report Type: Spontaneous
  Country: US (occurrence: None)
  Receive Date: 20221205
  Receipt Date: 20221205
  Transmission Date: 20230112
  Serious: Yes (Death)
  Sender: FDA-Public Use
  Company Number: None

PATIENT
  Age: 11 Year
  Sex: Male

DRUGS (17)
  1. TOBRAMYCIN [Suspect]
     Active Substance: TOBRAMYCIN
     Indication: Cerebral palsy
     Dosage: FREQUENCY : TWICE A DAY;?OTHER ROUTE : INHALED VIA NEBULIZER;?
     Route: 050
     Dates: start: 20210718, end: 20221126
  2. Symbicort 80/4.5mcg Inh [Concomitant]
  3. Colace 100mg capsules [Concomitant]
  4. Erythromycin Opth Oint 1GM [Concomitant]
  5. Flonase Children 50-mcg [Concomitant]
  6. Miralax 3350 NF Powder 119gm [Concomitant]
  7. Tylenol 160mg Chew Tab [Concomitant]
  8. LEVOTHYROXINE [Concomitant]
     Active Substance: LEVOTHYROXINE
  9. Potassium Chloride Powder Pcket [Concomitant]
  10. Tylenol Children^s  160/5ml Grape Susp [Concomitant]
  11. Phenobarbital 20mg/5ml [Concomitant]
  12. DIAZEPAM [Concomitant]
     Active Substance: DIAZEPAM
  13. LEVETIRACETAM [Concomitant]
     Active Substance: LEVETIRACETAM
  14. BACLOFEN [Concomitant]
     Active Substance: BACLOFEN
  15. DRONABINOL [Concomitant]
     Active Substance: DRONABINOL
  16. Albuterol 0.083% neb vials [Concomitant]
  17. Acetylcysteine 10% Inhalation Solution [Concomitant]

REACTIONS (1)
  - Death [None]

NARRATIVE: CASE EVENT DATE: 20221126
